FAERS Safety Report 15712047 (Version 4)
Quarter: 2019Q2

REPORT INFORMATION
  Report Type: Spontaneous
  Country: US (occurrence: US)
  Receive Date: 20181212
  Receipt Date: 20190426
  Transmission Date: 20190711
  Serious: Yes (Other)
  Sender: FDA-Public Use
  Company Number: US-009507513-1812USA004375

PATIENT
  Age: 55 Year
  Sex: Male

DRUGS (9)
  1. KEYTRUDA [Suspect]
     Active Substance: PEMBROLIZUMAB
     Indication: MALIGNANT MELANOMA
     Dosage: 2 MILLIGRAM/KILOGRAM, Q3 WEEKS
  2. ALBUTEROL. [Concomitant]
     Active Substance: ALBUTEROL
  3. BENZONATATE. [Concomitant]
     Active Substance: BENZONATATE
  4. VITAMINS (UNSPECIFIED) [Concomitant]
     Active Substance: VITAMINS
  5. OMEPRAZOLE. [Concomitant]
     Active Substance: OMEPRAZOLE
  6. OXYCODONE [Concomitant]
     Active Substance: OXYCODONE
  7. LORATADINE (+) PSEUDOEPHEDRINE SULFATE [Concomitant]
  8. GUAIFENESIN. [Concomitant]
     Active Substance: GUAIFENESIN
  9. ACETAMINOPHEN. [Concomitant]
     Active Substance: ACETAMINOPHEN

REACTIONS (1)
  - Autoimmune haemolytic anaemia [Recovered/Resolved]
